FAERS Safety Report 23726499 (Version 1)
Quarter: 2024Q2

REPORT INFORMATION
  Report Type: Spontaneous
  Country: US (occurrence: None)
  Receive Date: 20240409
  Receipt Date: 20240409
  Transmission Date: 20240716
  Serious: No
  Sender: FDA-Public Use
  Company Number: None

PATIENT
  Age: 18 Year
  Sex: Female
  Weight: 71.7 kg

DRUGS (9)
  1. CALASPARGASE PEGOL-MKNL [Suspect]
     Active Substance: CALASPARGASE PEGOL-MKNL
     Indication: B-cell type acute leukaemia
     Dosage: OTHER STRENGTH : 3750/5 U/ML;?
     Route: 042
     Dates: start: 20240207, end: 20240207
  2. DAUNORUBICIN [Concomitant]
     Active Substance: DAUNORUBICIN
  3. CYCLOPHOSPHAMIDE [Concomitant]
     Active Substance: CYCLOPHOSPHAMIDE
  4. CYTARABINE [Concomitant]
     Active Substance: CYTARABINE
  5. CYTARABINE [Concomitant]
     Active Substance: CYTARABINE
  6. METHOTREXATE [Concomitant]
     Active Substance: METHOTREXATE
  7. VINCRISTINE [Concomitant]
     Active Substance: VINCRISTINE
  8. MERCAPTOPURINE [Concomitant]
     Active Substance: MERCAPTOPURINE
  9. MERCAPTOPURINE [Concomitant]
     Active Substance: MERCAPTOPURINE

REACTIONS (1)
  - Pancreatitis acute [None]

NARRATIVE: CASE EVENT DATE: 20240222
